FAERS Safety Report 7180424-2 (Version None)
Quarter: 2010Q4

REPORT INFORMATION
  Report Type: 
  Country: None (occurrence: None)
  Receive Date: 20101221
  Receipt Date: 20101215
  Transmission Date: 20110411
  Serious: Yes (Other)
  Sender: FDA-Public Use
  Company Number: B0689982A

PATIENT

DRUGS (1)
  1. PAXIL [Suspect]
     Dosage: 20MG PER DAY
     Route: 048

REACTIONS (3)
  - AGGRESSION [None]
  - AGITATION [None]
  - HALLUCINATION [None]
